FAERS Safety Report 4489420-7 (Version None)
Quarter: 2004Q4

REPORT INFORMATION
  Report Type: 
  Country: None (occurrence: None)
  Receive Date: 20041101
  Receipt Date: 20041022
  Transmission Date: 20050328
  Serious: Yes (Life-Threatening)
  Sender: FDA-Public Use
  Company Number: JP-ABBOTT-04P-087-0278719-00

PATIENT
  Sex: Male

DRUGS (9)
  1. KALETRA [Suspect]
     Indication: HIV INFECTION
     Route: 048
     Dates: start: 20040216, end: 20040312
  2. ZIDOVUDINE W/LAMIVUDINE [Concomitant]
     Indication: HIV INFECTION
     Route: 048
     Dates: start: 20040216, end: 20040312
  3. ZIDOVUDINE W/LAMIVUDINE [Concomitant]
     Route: 048
     Dates: start: 20040101
  4. EPINASTINE HYDROCHLORIDE [Concomitant]
     Indication: SEASONAL ALLERGY
     Route: 048
     Dates: start: 20040216
  5. PL [Concomitant]
     Indication: NASOPHARYNGITIS
     Route: 048
     Dates: start: 20040216
  6. SERAPEPTASE [Concomitant]
     Indication: NASOPHARYNGITIS
     Route: 048
     Dates: start: 20040216
  7. CROMOLYN SODIUM [Concomitant]
     Indication: SEASONAL ALLERGY
     Route: 047
     Dates: start: 20040101
  8. RITONAVIR [Concomitant]
     Indication: HIV INFECTION
     Route: 048
     Dates: start: 20040101
  9. ATAZANAVIR [Concomitant]
     Indication: HIV INFECTION
     Route: 048
     Dates: start: 20040101

REACTIONS (2)
  - PALPITATIONS [None]
  - TACHYCARDIA [None]
